FAERS Safety Report 25388853 (Version 1)
Quarter: 2025Q2

REPORT INFORMATION
  Report Type: Report from Study
  Country: CN (occurrence: CN)
  Receive Date: 20250603
  Receipt Date: 20250603
  Transmission Date: 20250716
  Serious: Yes (Other)
  Sender: ROCHE
  Company Number: CN-ROCHE-10000284131

PATIENT
  Age: 52 Year
  Sex: Male

DRUGS (1)
  1. COLUMVI [Suspect]
     Active Substance: GLOFITAMAB-GXBM
     Indication: Diffuse large B-cell lymphoma
     Dosage: STRENGTH: 10MG (10ML)/VIAL
     Route: 042
     Dates: start: 20240408

REACTIONS (2)
  - White blood cell count decreased [Unknown]
  - Pancytopenia [Unknown]
